FAERS Safety Report 8059313-7 (Version None)
Quarter: 2012Q1

REPORT INFORMATION
  Report Type: 
  Country: None (occurrence: None)
  Receive Date: 20120120
  Receipt Date: 20120119
  Transmission Date: 20120608
  Serious: Yes (Death, Life-Threatening, Hospitalization, Other)
  Sender: FDA-Public Use
  Company Number: GB-GENZYME-CLOF-1001906

PATIENT
  Sex: Female
  Weight: 69.5 kg

DRUGS (3)
  1. EVOLTRA [Suspect]
     Indication: ACUTE MYELOID LEUKAEMIA
     Dosage: 1 DF, QDX5
     Route: 042
     Dates: start: 20071001, end: 20071005
  2. ALLOPURINOL [Suspect]
     Indication: PROPHYLAXIS
     Dosage: 300 MG, QD
     Route: 065
     Dates: start: 20071001, end: 20071009
  3. SEPTRA [Suspect]
     Indication: PROPHYLAXIS
     Dosage: 480 MG, QD
     Route: 065
     Dates: start: 20071001, end: 20071009

REACTIONS (5)
  - FEBRILE NEUTROPENIA [None]
  - CARDIAC ARREST [None]
  - PNEUMONIA [None]
  - ACUTE MYELOID LEUKAEMIA [None]
  - RASH [None]
